FAERS Safety Report 24208924 (Version 1)
Quarter: 2024Q3

REPORT INFORMATION
  Report Type: Spontaneous
  Country: JP (occurrence: JP)
  Receive Date: 20240814
  Receipt Date: 20240814
  Transmission Date: 20241016
  Serious: Yes (Hospitalization)
  Sender: ROCHE
  Company Number: JP-CHUGAI-2024027410AA

PATIENT
  Age: 85 Year
  Sex: Male
  Weight: 54.3 kg

DRUGS (1)
  1. EVRYSDI [Suspect]
     Active Substance: RISDIPLAM
     Indication: Spinal muscular atrophy
     Dosage: 6.6 MILLILITER, QD
     Route: 050

REACTIONS (1)
  - COVID-19 [Unknown]
